FAERS Safety Report 19933249 (Version 1)
Quarter: 2021Q4

REPORT INFORMATION
  Report Type: Spontaneous
  Country: US (occurrence: US)
  Receive Date: 20211007
  Receipt Date: 20211007
  Transmission Date: 20220303
  Serious: No
  Sender: FDA-Public Use
  Company Number: None

PATIENT
  Age: 4 Year
  Sex: Female

DRUGS (1)
  1. COPPERTONE PURE AND SIMPLE KIDS SPF 50 [Suspect]
     Active Substance: ZINC OXIDE

REACTIONS (1)
  - Skin burning sensation [None]
